FAERS Safety Report 26150978 (Version 1)
Quarter: 2025Q4

REPORT INFORMATION
  Report Type: Spontaneous
  Country: US (occurrence: US)
  Receive Date: 20251212
  Receipt Date: 20251212
  Transmission Date: 20260118
  Serious: No
  Sender: TEVA
  Company Number: US-TEVA-VS-3400055

PATIENT
  Age: 52 Year
  Sex: Female

DRUGS (2)
  1. BUDESONIDE [Suspect]
     Active Substance: BUDESONIDE
     Indication: Product used for unknown indication
     Route: 065
  2. DUPIXENT [Suspect]
     Active Substance: DUPILUMAB
     Indication: Nasal polyps
     Dosage: QOW
     Route: 058
     Dates: start: 202504

REACTIONS (3)
  - Sneezing [Unknown]
  - Sinus congestion [Unknown]
  - Sinus pain [Unknown]

NARRATIVE: CASE EVENT DATE: 20250101
